FAERS Safety Report 6922707-4 (Version None)
Quarter: 2010Q3

REPORT INFORMATION
  Report Type: 
  Country: None (occurrence: None)
  Receive Date: 20100811
  Receipt Date: 20100727
  Transmission Date: 20110219
  Serious: Yes (Hospitalization)
  Sender: FDA-Public Use
  Company Number: 2010003039

PATIENT
  Age: 78 Year
  Sex: Male

DRUGS (1)
  1. TARCEVA [Suspect]
     Indication: BRONCHIAL CARCINOMA
     Dosage: (150 MG, QD), ORAL
     Route: 048
     Dates: start: 20070813

REACTIONS (4)
  - FALL [None]
  - HEAD INJURY [None]
  - LACERATION [None]
  - RIB FRACTURE [None]
